FAERS Safety Report 8228401-4 (Version None)
Quarter: 2012Q1

REPORT INFORMATION
  Report Type: 
  Country: None (occurrence: None)
  Receive Date: 20120322
  Receipt Date: 20110824
  Transmission Date: 20120608
  Serious: No
  Sender: FDA-Public Use
  Company Number: US-BRISTOL-MYERS SQUIBB COMPANY-15925340

PATIENT

DRUGS (1)
  1. ERBITUX [Suspect]
     Dosage: 200MG VIAL,LOT # 09C00510C AND 09C00376A EXP DATE:NOV12;OF028A JUN12,OD027B OCT2011=45MG
     Route: 042

REACTIONS (1)
  - INCORRECT STORAGE OF DRUG [None]
